FAERS Safety Report 7356466 (Version 2)
Quarter: 2014Q2

REPORT INFORMATION
  Report Type: Report from Study
  Country: JP (occurrence: JP)
  Receive Date: 20100415
  Receipt Date: 20140430
  Transmission Date: 20141212
  Serious: Yes (Life-Threatening, Hospitalization, Other)
  Sender: FDA-Public Use
  Company Number: JP-JNJFOC-20100401999

PATIENT
  Age: 69 Year
  Sex: Female
  Weight: 73 kg

DRUGS (31)
  1. REMICADE [Suspect]
     Indication: BEHCET^S SYNDROME
     Route: 042
     Dates: start: 20080520
  2. REMICADE [Suspect]
     Indication: BEHCET^S SYNDROME
     Route: 042
     Dates: start: 20080603
  3. REMICADE [Suspect]
     Indication: BEHCET^S SYNDROME
     Route: 042
     Dates: start: 20080708
  4. REMICADE [Suspect]
     Indication: BEHCET^S SYNDROME
     Route: 042
     Dates: start: 200802
  5. REMICADE [Suspect]
     Indication: BEHCET^S SYNDROME
     Dosage: TOTAL OF 4 INFUSIONS
     Route: 042
     Dates: start: 20080829
  6. PREDNISOLONE [Suspect]
     Indication: BEHCET^S SYNDROME
     Route: 048
     Dates: start: 20080509, end: 20080809
  7. PREDNISOLONE [Suspect]
     Indication: BEHCET^S SYNDROME
     Route: 048
  8. PREDNISOLONE [Suspect]
     Indication: BEHCET^S SYNDROME
     Route: 048
  9. PREDNISOLONE [Suspect]
     Indication: BEHCET^S SYNDROME
     Route: 048
     Dates: start: 20080810, end: 20081013
  10. COLCHICINE [Concomitant]
     Indication: BEHCET^S SYNDROME
     Route: 048
     Dates: start: 20080812, end: 20081013
  11. COLCHICINE [Concomitant]
     Indication: BEHCET^S SYNDROME
     Route: 048
     Dates: start: 20080808, end: 20080811
  12. COLCHICINE [Concomitant]
     Indication: BEHCET^S SYNDROME
     Route: 048
     Dates: start: 20080520, end: 20080807
  13. COLCHICINE [Concomitant]
     Indication: BEHCET^S SYNDROME
     Route: 048
     Dates: start: 20080509, end: 20080519
  14. COLCHICINE [Concomitant]
     Indication: BEHCET^S SYNDROME
     Route: 048
     Dates: end: 20081009
  15. ITOROL [Concomitant]
     Indication: ANGINA PECTORIS
     Route: 048
  16. AMOBAN [Concomitant]
     Indication: INSOMNIA
     Route: 048
  17. ALOSENN [Concomitant]
     Indication: CONSTIPATION
     Route: 048
  18. HERBESSER R [Concomitant]
     Indication: HYPERTENSION
     Route: 048
  19. KALGUT [Concomitant]
     Indication: CARDIAC FAILURE
     Route: 048
  20. ISCOTIN [Concomitant]
     Indication: ANTIBIOTIC PROPHYLAXIS
     Route: 048
     Dates: start: 20080520, end: 20081007
  21. ANTIHISTAMINES [Concomitant]
     Indication: PROPHYLAXIS
     Dates: start: 20080708, end: 20080708
  22. ANTIHISTAMINES [Concomitant]
     Indication: PROPHYLAXIS
     Dates: start: 20080603, end: 20080603
  23. ANTIHISTAMINES [Concomitant]
     Indication: PROPHYLAXIS
     Dates: start: 20080520, end: 20080520
  24. SHAKUYAKUKANZOUTOU [Concomitant]
     Indication: MUSCLE SPASMS
     Route: 048
  25. NITROPEN [Concomitant]
     Indication: ANGINA PECTORIS
     Route: 048
     Dates: start: 20071120, end: 20071120
  26. NITROPEN [Concomitant]
     Indication: ANGINA PECTORIS
     Route: 048
     Dates: start: 200802, end: 200802
  27. NITROPEN [Concomitant]
     Indication: ANGINA PECTORIS
     Route: 048
     Dates: start: 20071218, end: 20071218
  28. NITROPEN [Concomitant]
     Indication: ANGINA PECTORIS
     Route: 048
     Dates: start: 20080325, end: 20080325
  29. NITROPEN [Concomitant]
     Indication: ANGINA PECTORIS
     Route: 048
     Dates: start: 20080311, end: 20080311
  30. CRAVIT [Concomitant]
     Indication: URINARY TRACT INFECTION
     Route: 048
     Dates: start: 20080701, end: 20080707
  31. JZOLOFT [Concomitant]
     Indication: MUSCULAR WEAKNESS
     Route: 048
     Dates: start: 20081008, end: 20081013

REACTIONS (4)
  - Muscular weakness [Recovering/Resolving]
  - Angina pectoris [Recovered/Resolved]
  - Mononeuropathy multiplex [Recovered/Resolved with Sequelae]
  - Urinary tract infection [Recovered/Resolved]
